FAERS Safety Report 23267567 (Version 1)
Quarter: 2023Q4

REPORT INFORMATION
  Report Type: Other
  Country: US (occurrence: None)
  Receive Date: 20231206
  Receipt Date: 20231206
  Transmission Date: 20240109
  Serious: No
  Sender: FDA-Public Use
  Company Number: US-ROCHE-3468527

PATIENT

DRUGS (12)
  1. RITUXIMAB [Suspect]
     Active Substance: RITUXIMAB
     Indication: Product used for unknown indication
     Route: 063
  2. RITUXIMAB [Suspect]
     Active Substance: RITUXIMAB
     Route: 064
  3. OCRELIZUMAB [Suspect]
     Active Substance: OCRELIZUMAB
     Indication: Product used for unknown indication
     Route: 063
  4. OCRELIZUMAB [Suspect]
     Active Substance: OCRELIZUMAB
     Route: 064
  5. DIMETHYL FUMARATE [Suspect]
     Active Substance: DIMETHYL FUMARATE
     Indication: Product used for unknown indication
     Route: 063
  6. DIMETHYL FUMARATE [Suspect]
     Active Substance: DIMETHYL FUMARATE
     Route: 064
  7. FINGOLIMOD [Suspect]
     Active Substance: FINGOLIMOD
     Indication: Product used for unknown indication
     Route: 063
  8. FINGOLIMOD [Suspect]
     Active Substance: FINGOLIMOD
     Route: 064
  9. GLATIRAMER ACETATE [Suspect]
     Active Substance: GLATIRAMER ACETATE
     Indication: Product used for unknown indication
     Route: 063
  10. GLATIRAMER ACETATE [Suspect]
     Active Substance: GLATIRAMER ACETATE
     Route: 064
  11. NATALIZUMAB [Suspect]
     Active Substance: NATALIZUMAB
     Indication: Product used for unknown indication
     Route: 063
  12. NATALIZUMAB [Suspect]
     Active Substance: NATALIZUMAB
     Route: 064

REACTIONS (17)
  - Nasopharyngitis [Unknown]
  - Upper respiratory tract infection [Unknown]
  - Otitis media [Unknown]
  - Viral infection [Unknown]
  - Pyrexia [Unknown]
  - Influenza [Unknown]
  - COVID-19 [Unknown]
  - Dacryostenosis acquired [Unknown]
  - Conjunctivitis [Unknown]
  - Urinary tract infection [Unknown]
  - Candida nappy rash [Unknown]
  - Oral candidiasis [Unknown]
  - Gastrooesophageal reflux disease [Unknown]
  - Oesophagitis [Unknown]
  - Foetal exposure during pregnancy [Unknown]
  - Exposure via breast milk [Unknown]
  - Developmental delay [Unknown]
